FAERS Safety Report 5844975-2 (Version None)
Quarter: 2008Q3

REPORT INFORMATION
  Report Type: 
  Country: None (occurrence: None)
  Receive Date: 20080813
  Receipt Date: 20080813
  Transmission Date: 20090109
  Serious: No
  Sender: FDA-Public Use
  Company Number: None

PATIENT
  Age: 36 Year
  Sex: Male
  Weight: 114 kg

DRUGS (2)
  1. RISPERDAL [Suspect]
     Indication: DEPRESSION
     Dosage: ONE AT NIGHT
     Dates: start: 20020101, end: 20070515
  2. JONCTUM [Suspect]
     Dosage: MORNING AND NIGHT
     Dates: start: 20060816, end: 20061016

REACTIONS (2)
  - DRUG INTERACTION [None]
  - INSOMNIA [None]
